FAERS Safety Report 18817402 (Version 1)
Quarter: 2021Q1

REPORT INFORMATION
  Report Type: Spontaneous
  Country: US (occurrence: US)
  Receive Date: 20210201
  Receipt Date: 20210201
  Transmission Date: 20210419
  Serious: Yes (Disabling, Other)
  Sender: FDA-Public Use
  Company Number: US-PURDUE-USA-2020-0201957

PATIENT
  Sex: Male

DRUGS (1)
  1. MSIR TABLETS [Suspect]
     Active Substance: MORPHINE SULFATE
     Indication: PRODUCT USED FOR UNKNOWN INDICATION
     Dosage: UNK
     Route: 064

REACTIONS (7)
  - Developmental delay [None]
  - Hypospadias [Unknown]
  - Foetal exposure during pregnancy [Recovered/Resolved]
  - Attention deficit hyperactivity disorder [Unknown]
  - Multiple congenital abnormalities [Unknown]
  - Strabismus [Unknown]
  - Learning disability [Unknown]
